FAERS Safety Report 5068757-7 (Version None)
Quarter: 2006Q3

REPORT INFORMATION
  Report Type: 
  Country: None (occurrence: None)
  Receive Date: 20060802
  Receipt Date: 20060317
  Transmission Date: 20061208
  Serious: No
  Sender: FDA-Public Use
  Company Number: US-BRISTOL-MYERS SQUIBB COMPANY-13319660

PATIENT
  Age: 40 Year
  Sex: Female
  Weight: 93 kg

DRUGS (6)
  1. COUMADIN [Suspect]
     Indication: CARDIAC OPERATION
     Dosage: STARTED TAKING 0.5 MG DAILY AND THE DOSE HAS BEEN INCREASED EVERY 2 WEEKS SINCE THE START OF TRT
     Dates: start: 20060105
  2. EPOGEN [Concomitant]
  3. LOTREL [Concomitant]
  4. NEXIUM [Concomitant]
  5. IRON [Concomitant]
  6. ACETAMINOPHEN [Concomitant]

REACTIONS (1)
  - HYPOAESTHESIA [None]
